FAERS Safety Report 9927983 (Version 1)
Quarter: 2014Q1

REPORT INFORMATION
  Report Type: Spontaneous
  Country: IT (occurrence: None)
  Receive Date: 20140224
  Receipt Date: 20140224
  Transmission Date: 20141002
  Serious: Yes (Hospitalization)
  Sender: FDA-Public Use
  Company Number: 2014P1001337

PATIENT
  Age: 70 Year
  Sex: Female

DRUGS (3)
  1. AMIODARONE [Suspect]
     Indication: ATRIAL FIBRILLATION
  2. UNSPECIFIED ORAL [Concomitant]
  3. ANTICOAGULATION CON [Concomitant]

REACTIONS (6)
  - Dyspnoea [None]
  - Pyrexia [None]
  - Respiratory failure [None]
  - Interstitial lung disease [None]
  - Obliterative bronchiolitis [None]
  - Pulmonary toxicity [None]
